FAERS Safety Report 5273202-2 (Version None)
Quarter: 2007Q1

REPORT INFORMATION
  Report Type: 
  Country: None (occurrence: None)
  Receive Date: 20070322
  Receipt Date: 20070307
  Transmission Date: 20070707
  Serious: Yes (Other)
  Sender: FDA-Public Use
  Company Number: JP-PFIZER INC-2007021035

PATIENT
  Age: 86 Year
  Sex: Male

DRUGS (1)
  1. MIGLITOL TABLET [Suspect]
     Indication: DIABETES MELLITUS
     Route: 048
     Dates: start: 20070223, end: 20070228

REACTIONS (1)
  - INTESTINAL OBSTRUCTION [None]
